FAERS Safety Report 22614370 (Version 1)
Quarter: 2023Q2

REPORT INFORMATION
  Report Type: Spontaneous
  Country: DE (occurrence: None)
  Receive Date: 20230619
  Receipt Date: 20230619
  Transmission Date: 20230721
  Serious: Yes (Hospitalization)
  Sender: FDA-Public Use
  Company Number: 2023A138241

PATIENT
  Age: 60 Year
  Sex: Male

DRUGS (13)
  1. DAPAGLIFLOZIN [Suspect]
     Active Substance: DAPAGLIFLOZIN
     Indication: Type 2 diabetes mellitus
     Route: 048
     Dates: start: 2018
  2. LYUMJEV [Concomitant]
     Active Substance: INSULIN LISPRO-AABC
  3. TRESIBA [Concomitant]
     Active Substance: INSULIN DEGLUDEC
  4. METFORMIN [Concomitant]
     Active Substance: METFORMIN HYDROCHLORIDE
  5. JARDIANCE [Concomitant]
     Active Substance: EMPAGLIFLOZIN
  6. TRULICITY [Concomitant]
     Active Substance: DULAGLUTIDE
  7. TORSEMIDE [Concomitant]
     Active Substance: TORSEMIDE
  8. SPIRONOLACTONE [Concomitant]
     Active Substance: SPIRONOLACTONE
  9. BISO-HENNIG [Concomitant]
  10. MAGNESIUM ASPARTATE HYDROCHLORIDE [Concomitant]
     Active Substance: MAGNESIUM ASPARTATE HYDROCHLORIDE
  11. ENTRESTO [Concomitant]
     Active Substance: SACUBITRIL\VALSARTAN
  12. ATORVASTATIN [Concomitant]
     Active Substance: ATORVASTATIN
  13. ALFUZOSIN [Concomitant]
     Active Substance: ALFUZOSIN

REACTIONS (4)
  - Cardiac failure [Unknown]
  - Sepsis [Unknown]
  - Urinary tract infection [Unknown]
  - Pneumonia [Unknown]
